FAERS Safety Report 5229742-5 (Version None)
Quarter: 2007Q1

REPORT INFORMATION
  Report Type: 
  Country: None (occurrence: None)
  Receive Date: 20070206
  Receipt Date: 20070124
  Transmission Date: 20070707
  Serious: Yes (Other)
  Sender: FDA-Public Use
  Company Number: US-PFIZER INC-2007004358

PATIENT
  Sex: Male
  Weight: 28.1 kg

DRUGS (1)
  1. ZARONTIN [Suspect]
     Indication: PETIT MAL EPILEPSY

REACTIONS (1)
  - PETIT MAL EPILEPSY [None]
